FAERS Safety Report 15343190 (Version 2)
Quarter: 2025Q4

REPORT INFORMATION
  Report Type: Spontaneous
  Country: EU (occurrence: EU)
  Receive Date: 20180903
  Receipt Date: 20251003
  Transmission Date: 20260117
  Serious: Yes (Life-Threatening, Other)
  Sender: AUROBINDO
  Company Number: EU-AUROBINDO-AUR-APL-2018-043842

PATIENT
  Age: 74 Year
  Sex: Female

DRUGS (7)
  1. PREDNISONE [Suspect]
     Active Substance: PREDNISONE
     Indication: Acquired haemophilia
     Dosage: 1 MILLIGRAM/KILOGRAM, DAILY (1 MG/KG, QD)
     Route: 065
  2. AZACITIDINE [Suspect]
     Active Substance: AZACITIDINE
     Indication: Chronic myelomonocytic leukaemia
     Dosage: 75 MILLIGRAM/SQ. METER
     Route: 042
  3. RITUXIMAB [Suspect]
     Active Substance: RITUXIMAB
     Indication: Acquired haemophilia
     Dosage: 375 MG/KG/M2, QW
     Route: 041
  4. FEIBA [Concomitant]
     Active Substance: ANTI-INHIBITOR COAGULANT COMPLEX
     Indication: Acquired haemophilia
     Dosage: 150 INTERNATIONAL UNIT/KILOGRAM, DAILY (75 IU/KG, BID)
     Route: 065
  5. FEIBA [Concomitant]
     Active Substance: ANTI-INHIBITOR COAGULANT COMPLEX
     Dosage: 75 INTERNATIONAL UNIT/KILOGRAM, DAILY (75 IU/KG, QD)
     Route: 065
  6. FEIBA [Concomitant]
     Active Substance: ANTI-INHIBITOR COAGULANT COMPLEX
     Dosage: 75 INTERNATIONAL UNIT/KILOGRAM, EVERY OTHER DAY (75 IU/KG, Q48H)
     Route: 065
  7. FEIBA [Concomitant]
     Active Substance: ANTI-INHIBITOR COAGULANT COMPLEX
     Dosage: 75 INTERNATIONAL UNIT/KILOGRAM, DAILY (75 IU/KG, QD)
     Route: 065

REACTIONS (4)
  - Carotid artery thrombosis [Unknown]
  - Behaviour disorder [Unknown]
  - Necrotising fasciitis [Recovering/Resolving]
  - Ischaemic stroke [Unknown]
